FAERS Safety Report 7152174-X (Version None)
Quarter: 2010Q4

REPORT INFORMATION
  Report Type: 
  Country: None (occurrence: None)
  Receive Date: 20101213
  Receipt Date: 20101203
  Transmission Date: 20110411
  Serious: No
  Sender: FDA-Public Use
  Company Number: US-BIOGENIDEC-2010BI042953

PATIENT
  Sex: Female

DRUGS (1)
  1. AVONEX [Suspect]
     Indication: MULTIPLE SCLEROSIS
     Route: 030
     Dates: start: 20100314

REACTIONS (7)
  - DRY SKIN [None]
  - GENERAL SYMPTOM [None]
  - MEMORY IMPAIRMENT [None]
  - MENOPAUSE [None]
  - PRURITUS [None]
  - SKIN EXFOLIATION [None]
  - STRESS [None]
